FAERS Safety Report 11049925 (Version 5)
Quarter: 2015Q3

REPORT INFORMATION
  Report Type: Spontaneous
  Country: US (occurrence: US)
  Receive Date: 20150420
  Receipt Date: 20150720
  Transmission Date: 20151125
  Serious: No
  Sender: FDA-Public Use
  Company Number: US-GILEAD-2015-0149479

PATIENT
  Age: 61 Year
  Sex: Male

DRUGS (2)
  1. TETANUS VACCINE [Concomitant]
     Active Substance: CLOSTRIDIUM TETANI TOXOID ANTIGEN (FORMALDEHYDE INACTIVATED)
     Indication: TETANUS IMMUNISATION
     Dosage: UNK
     Dates: start: 20150413
  2. HARVONI [Suspect]
     Active Substance: LEDIPASVIR\SOFOSBUVIR
     Indication: CHRONIC HEPATITIS C
     Dosage: 1 DF, QD
     Route: 048
     Dates: start: 20150324

REACTIONS (6)
  - Constipation [Not Recovered/Not Resolved]
  - Laceration [Unknown]
  - Dyspepsia [Not Recovered/Not Resolved]
  - Pain in extremity [Not Recovered/Not Resolved]
  - Headache [Not Recovered/Not Resolved]
  - Fall [Unknown]
